FAERS Safety Report 11906673 (Version 2)
Quarter: 2016Q1

REPORT INFORMATION
  Report Type: Not Available
  Country: AU (occurrence: AU)
  Receive Date: 20160111
  Receipt Date: 20160118
  Transmission Date: 20160526
  Serious: Yes (Life-Threatening, Hospitalization)
  Sender: FDA-Public Use
  Company Number: AU-MUNDIPHARMA DS AND PHARMACOVIGILANCE-GBR-2016-0033409

PATIENT
  Age: 28 Year
  Sex: Male
  Weight: 82 kg

DRUGS (1)
  1. OXYCONTIN [Suspect]
     Active Substance: OXYCODONE HYDROCHLORIDE
     Indication: PRODUCT USED FOR UNKNOWN INDICATION
     Dosage: 240 MG, DAILY (HALF IN THE MORNING AND HALF IN THE EVENING)
     Route: 042
     Dates: start: 201510, end: 201510

REACTIONS (5)
  - Incorrect route of drug administration [Recovering/Resolving]
  - Abdominal pain [Recovering/Resolving]
  - Vomiting [Recovering/Resolving]
  - Haemolytic uraemic syndrome [Recovering/Resolving]
  - Drug diversion [Recovering/Resolving]

NARRATIVE: CASE EVENT DATE: 20151021
